FAERS Safety Report 8125342-8 (Version None)
Quarter: 2012Q1

REPORT INFORMATION
  Report Type: 
  Country: None (occurrence: None)
  Receive Date: 20120209
  Receipt Date: 20120202
  Transmission Date: 20120608
  Serious: Yes (Hospitalization)
  Sender: FDA-Public Use
  Company Number: US-GLAXOSMITHKLINE-A0964646A

PATIENT
  Age: 52 Year
  Sex: Female

DRUGS (3)
  1. SPIRONOLACTONE [Concomitant]
  2. FLOLAN [Suspect]
     Indication: PRODUCT USED FOR UNKNOWN INDICATION
     Dosage: 72.4NGKM UNKNOWN
     Dates: start: 20100520
  3. FUROSEMIDE [Concomitant]

REACTIONS (2)
  - DEVICE RELATED INFECTION [None]
  - INFUSION SITE INFECTION [None]
